FAERS Safety Report 5218002-4 (Version None)
Quarter: 2007Q1

REPORT INFORMATION
  Report Type: 
  Country: None (occurrence: None)
  Receive Date: 20061130
  Receipt Date: 20060918
  Transmission Date: 20070707
  Serious: Yes (Hospitalization, Other)
  Sender: FDA-Public Use
  Company Number: US200607001065

PATIENT
  Age: 28 Year
  Sex: Female
  Weight: 86.6 kg

DRUGS (4)
  1. ZYPREXA [Suspect]
     Dosage: SEE IMAGE
     Dates: start: 20010820, end: 20021002
  2. ZYPREXA [Suspect]
     Dosage: SEE IMAGE
     Dates: start: 20021201, end: 20030101
  3. DEPO-PROVERA SUSPENSION/INJ [Concomitant]
  4. DEPAKOTE [Concomitant]

REACTIONS (5)
  - DIABETES MELLITUS [None]
  - DIABETIC COMA [None]
  - METABOLIC DISORDER [None]
  - OBESITY [None]
  - WEIGHT DECREASED [None]
